FAERS Safety Report 15256053 (Version 1)
Quarter: 2018Q3

REPORT INFORMATION
  Report Type: Spontaneous
  Country: US (occurrence: US)
  Receive Date: 20180718
  Receipt Date: 20180718
  Transmission Date: 20181010
  Serious: Yes (Hospitalization)
  Sender: FDA-Public Use
  Company Number: None

PATIENT
  Sex: Female

DRUGS (13)
  1. TRIAMCINOLONE [Concomitant]
     Active Substance: TRIAMCINOLONE
  2. ALEVE [Concomitant]
     Active Substance: NAPROXEN SODIUM
  3. RANITIDINE. [Concomitant]
     Active Substance: RANITIDINE
  4. VALSARTAN. [Concomitant]
     Active Substance: VALSARTAN
  5. OMEPRAZOLE. [Concomitant]
     Active Substance: OMEPRAZOLE
  6. METFORMIN [Concomitant]
     Active Substance: METFORMIN HYDROCHLORIDE
  7. IMATINIB MESYLATE. [Suspect]
     Active Substance: IMATINIB MESYLATE
     Indication: CHRONIC MYELOID LEUKAEMIA
     Route: 048
     Dates: start: 20171017
  8. FUROSEMIDE. [Concomitant]
     Active Substance: FUROSEMIDE
  9. CARVEDILOL. [Concomitant]
     Active Substance: CARVEDILOL
  10. ATORVASTATIN [Concomitant]
     Active Substance: ATORVASTATIN
  11. ELIQUIS [Concomitant]
     Active Substance: APIXABAN
  12. ESCITALOPRAM [Concomitant]
     Active Substance: ESCITALOPRAM OXALATE
  13. AMLODIPINE [Concomitant]
     Active Substance: AMLODIPINE BESYLATE

REACTIONS (1)
  - Cerebrovascular accident [None]
